FAERS Safety Report 8154686 (Version 8)
Quarter: 2016Q4

REPORT INFORMATION
  Report Type: Spontaneous
  Country: US (occurrence: US)
  Receive Date: 20110923
  Receipt Date: 20161122
  Transmission Date: 20170207
  Serious: Yes (Life-Threatening, Hospitalization, Other)
  Sender: FDA-Public Use
  Company Number: US-GLAXOSMITHKLINE-A0944789A

PATIENT
  Age: 58 Year
  Sex: Female

DRUGS (15)
  1. LAMICTAL [Suspect]
     Active Substance: LAMOTRIGINE
     Indication: SEIZURE
     Dosage: 100 MG, UNK
     Route: 048
     Dates: start: 200707
  2. TRAZODONE [Concomitant]
     Active Substance: TRAZODONE HYDROCHLORIDE
  3. METFORMIN [Suspect]
     Active Substance: METFORMIN HYDROCHLORIDE
     Indication: DIABETES MELLITUS
     Route: 048
     Dates: start: 201112
  4. PRAVASTATIN. [Concomitant]
     Active Substance: PRAVASTATIN
  5. LAMICTAL [Suspect]
     Active Substance: LAMOTRIGINE
     Dosage: 100 MG, 2QAM 3QPM
     Dates: start: 2015
  6. LYRICA [Suspect]
     Active Substance: PREGABALIN
     Indication: SEIZURE
     Route: 048
     Dates: start: 200906
  7. LYRICA [Suspect]
     Active Substance: PREGABALIN
     Indication: NEUROPATHY PERIPHERAL
  8. DILANTIN [Suspect]
     Active Substance: PHENYTOIN
     Indication: SEIZURE
     Dosage: 100 MG CAPSULES
     Route: 048
     Dates: start: 200707
  9. LAMICTAL [Suspect]
     Active Substance: LAMOTRIGINE
     Dosage: 100 MG, 2 QAM 2QPM
  10. PHENYTOIN. [Concomitant]
     Active Substance: PHENYTOIN
  11. PHENOBARBITAL. [Suspect]
     Active Substance: PHENOBARBITAL
     Indication: SEIZURE
     Route: 065
  12. LEVOTHYROXINE. [Concomitant]
     Active Substance: LEVOTHYROXINE
  13. SERTRALINE [Concomitant]
     Active Substance: SERTRALINE HYDROCHLORIDE
  14. LISINOPRIL. [Concomitant]
     Active Substance: LISINOPRIL
  15. AMLODIPINE [Concomitant]
     Active Substance: AMLODIPINE BESYLATE

REACTIONS (8)
  - Speech disorder [Recovered/Resolved]
  - Hospitalisation [Recovered/Resolved]
  - Intentional underdose [Unknown]
  - Seizure [Recovered/Resolved]
  - Drug ineffective [Unknown]
  - Treatment noncompliance [Recovered/Resolved]
  - Drug dose omission [Unknown]
  - Fatigue [Recovered/Resolved]

NARRATIVE: CASE EVENT DATE: 201108
